FAERS Safety Report 15681587 (Version 3)
Quarter: 2019Q1

REPORT INFORMATION
  Report Type: Spontaneous
  Country: FR (occurrence: FR)
  Receive Date: 20181203
  Receipt Date: 20190313
  Transmission Date: 20190417
  Serious: Yes (Other)
  Sender: FDA-Public Use
  Company Number: FR-GRUNENTHAL-2018-24295

PATIENT
  Age: 33 Year
  Sex: Female

DRUGS (4)
  1. QUTENZA [Suspect]
     Active Substance: CAPSAICIN
     Indication: NEURALGIA
     Dosage: 1 DF, 1/DAY
     Route: 003
     Dates: start: 20180706, end: 20180706
  2. VERSATIS [Concomitant]
     Active Substance: LIDOCAINE
     Indication: PRODUCT USED FOR UNKNOWN INDICATION
     Dosage: 1 DF, 1/DAY
     Route: 061
  3. PROPRANOLOL [Concomitant]
     Active Substance: PROPRANOLOL HYDROCHLORIDE
     Indication: PRODUCT USED FOR UNKNOWN INDICATION
     Dosage: 40 MG, 1/DAY
  4. ATARAX [Concomitant]
     Active Substance: HYDROXYZINE HYDROCHLORIDE
     Indication: PRODUCT USED FOR UNKNOWN INDICATION
     Dosage: 50 MG, 1/DAY
     Route: 048

REACTIONS (4)
  - Application site vesicles [Recovered/Resolved]
  - Application site erythema [Unknown]
  - Burning sensation [Unknown]
  - Application site burn [Recovered/Resolved]

NARRATIVE: CASE EVENT DATE: 20180706
